FAERS Safety Report 11820986 (Version 1)
Quarter: 2015Q4

REPORT INFORMATION
  Report Type: Spontaneous
  Country: US (occurrence: US)
  Receive Date: 20151210
  Receipt Date: 20151210
  Transmission Date: 20160305
  Serious: No
  Sender: FDA-Public Use
  Company Number: US-JNJFOC-20150723164

PATIENT
  Age: 72 Year
  Sex: Male

DRUGS (11)
  1. XARELTO [Concomitant]
     Active Substance: RIVAROXABAN
  2. ATENOLOL. [Concomitant]
     Active Substance: ATENOLOL
  3. CIALIS [Concomitant]
     Active Substance: TADALAFIL
  4. DICLOFENAC [Concomitant]
     Active Substance: DICLOFENAC
  5. FINASTERIDE. [Concomitant]
     Active Substance: FINASTERIDE
  6. FOLIC ACID. [Concomitant]
     Active Substance: FOLIC ACID
  7. IMBRUVICA [Suspect]
     Active Substance: IBRUTINIB
     Indication: B-CELL LYMPHOMA
     Route: 048
     Dates: start: 20141230
  8. AMLODIPINE [Concomitant]
     Active Substance: AMLODIPINE BESYLATE
  9. LIPITOR [Concomitant]
     Active Substance: ATORVASTATIN CALCIUM
  10. PEPCID [Concomitant]
     Active Substance: FAMOTIDINE
  11. WARFARIN [Concomitant]
     Active Substance: WARFARIN

REACTIONS (2)
  - Arthralgia [Unknown]
  - Off label use [Unknown]

NARRATIVE: CASE EVENT DATE: 20141230
